FAERS Safety Report 9771106 (Version 2)
Quarter: 2014Q1

REPORT INFORMATION
  Report Type: Spontaneous
  Country: NO (occurrence: NO)
  Receive Date: 20131218
  Receipt Date: 20140102
  Transmission Date: 20141002
  Serious: Yes (Life-Threatening)
  Sender: FDA-Public Use
  Company Number: NO-UCBSA-105854

PATIENT
  Age: 18 Year
  Sex: Female

DRUGS (2)
  1. KEPPRA [Suspect]
     Indication: EPILEPSY
     Route: 048
     Dates: start: 20131002, end: 20131108
  2. CIRCADIN [Concomitant]
     Indication: INSOMNIA
     Route: 048
     Dates: start: 20130213

REACTIONS (4)
  - Psychomotor hyperactivity [Recovered/Resolved]
  - Restlessness [Recovered/Resolved]
  - Hypophagia [Recovered/Resolved]
  - Insomnia [Recovered/Resolved]
